FAERS Safety Report 16299398 (Version 1)
Quarter: 2019Q2

REPORT INFORMATION
  Report Type: Spontaneous
  Country: US (occurrence: US)
  Receive Date: 20190510
  Receipt Date: 20190510
  Transmission Date: 20190711
  Serious: Yes (Other)
  Sender: FDA-Public Use
  Company Number: US-BAYER-2019-092303

PATIENT

DRUGS (18)
  1. EOVIST [Suspect]
     Active Substance: GADOXETATE DISODIUM
     Indication: NUCLEAR MAGNETIC RESONANCE IMAGING
     Dosage: UNK
     Route: 042
  2. EOVIST [Suspect]
     Active Substance: GADOXETATE DISODIUM
     Indication: ANGIOGRAM
  3. OMNISCAN [Suspect]
     Active Substance: GADODIAMIDE
     Indication: ANGIOGRAM
  4. OPTIMARK [Suspect]
     Active Substance: GADOVERSETAMIDE
     Indication: COMPUTERISED TOMOGRAM
  5. MAGNEVIST [Suspect]
     Active Substance: GADOPENTETATE DIMEGLUMINE
     Indication: ANGIOGRAM
  6. MAGNEVIST [Suspect]
     Active Substance: GADOPENTETATE DIMEGLUMINE
     Indication: COMPUTERISED TOMOGRAM
  7. GADOLINIUM IN UNSPECIFIED DRUG [Suspect]
     Active Substance: GADOLINIUM
     Indication: COMPUTERISED TOMOGRAM
  8. MULTIHANCE [Suspect]
     Active Substance: GADOBENATE DIMEGLUMINE
     Indication: ANGIOGRAM
  9. GADOLINIUM IN UNSPECIFIED DRUG [Suspect]
     Active Substance: GADOLINIUM
     Indication: NUCLEAR MAGNETIC RESONANCE IMAGING
     Route: 042
  10. MULTIHANCE [Suspect]
     Active Substance: GADOBENATE DIMEGLUMINE
     Indication: COMPUTERISED TOMOGRAM
  11. OPTIMARK [Suspect]
     Active Substance: GADOVERSETAMIDE
     Indication: ANGIOGRAM
  12. MAGNEVIST [Suspect]
     Active Substance: GADOPENTETATE DIMEGLUMINE
     Indication: NUCLEAR MAGNETIC RESONANCE IMAGING
     Route: 042
  13. EOVIST [Suspect]
     Active Substance: GADOXETATE DISODIUM
     Indication: COMPUTERISED TOMOGRAM
  14. OMNISCAN [Suspect]
     Active Substance: GADODIAMIDE
     Indication: NUCLEAR MAGNETIC RESONANCE IMAGING
     Route: 042
  15. MULTIHANCE [Suspect]
     Active Substance: GADOBENATE DIMEGLUMINE
     Indication: NUCLEAR MAGNETIC RESONANCE IMAGING
     Route: 042
  16. GADOLINIUM IN UNSPECIFIED DRUG [Suspect]
     Active Substance: GADOLINIUM
     Indication: ANGIOGRAM
  17. OMNISCAN [Suspect]
     Active Substance: GADODIAMIDE
     Indication: COMPUTERISED TOMOGRAM
  18. OPTIMARK [Suspect]
     Active Substance: GADOVERSETAMIDE
     Indication: NUCLEAR MAGNETIC RESONANCE IMAGING
     Route: 042

REACTIONS (19)
  - Pain [None]
  - Confusional state [None]
  - Paraesthesia [None]
  - Arthralgia [None]
  - Anhedonia [None]
  - Contrast media deposition [None]
  - Rash [None]
  - Burning sensation [None]
  - Fatigue [None]
  - Hypoaesthesia [None]
  - Emotional distress [None]
  - Mental impairment [None]
  - Inflammation [None]
  - Injury [None]
  - Gadolinium deposition disease [None]
  - Muscle spasms [None]
  - Mobility decreased [None]
  - Asthenia [None]
  - Mass [None]
